FAERS Safety Report 5975768-3 (Version None)
Quarter: 2008Q4

REPORT INFORMATION
  Report Type: 
  Country: None (occurrence: None)
  Receive Date: 20081202
  Receipt Date: 20081120
  Transmission Date: 20090506
  Serious: Yes (Other)
  Sender: FDA-Public Use
  Company Number: US-ROCHE-594605

PATIENT
  Sex: Female

DRUGS (4)
  1. PEG-INTERFERON A-2A (RO 25-8310) [Suspect]
     Dosage: PATIENT IN WEEK 39 OF THERAPY. FORM: VIALS
     Route: 065
     Dates: start: 20080201
  2. RIBAVIRIN [Suspect]
     Route: 065
     Dates: start: 20080201
  3. LISINOPRIL [Concomitant]
  4. HYDROCHLOROTHIAZIDE [Concomitant]
     Dosage: FORM: PILL

REACTIONS (2)
  - BLOOD PRESSURE INADEQUATELY CONTROLLED [None]
  - WEIGHT DECREASED [None]
